FAERS Safety Report 7303375-9 (Version None)
Quarter: 2011Q1

REPORT INFORMATION
  Report Type: 
  Country: None (occurrence: None)
  Receive Date: 20110221
  Receipt Date: 20110207
  Transmission Date: 20110831
  Serious: Yes (Hospitalization, Other)
  Sender: FDA-Public Use
  Company Number: US-ELI_LILLY_AND_COMPANY-US200912006328

PATIENT
  Sex: Female
  Weight: 46.712 kg

DRUGS (2)
  1. FORTEO [Suspect]
     Indication: OSTEOPOROSIS
     Dosage: 20 UG, DAILY (1/D)
     Route: 058
  2. ANTIBIOTICS [Concomitant]

REACTIONS (8)
  - NAUSEA [None]
  - PAIN [None]
  - JOINT EFFUSION [None]
  - RHEUMATOID ARTHRITIS [None]
  - OSTEOARTHRITIS [None]
  - SYNOVITIS [None]
  - MENISCUS LESION [None]
  - TOOTH EXTRACTION [None]
